FAERS Safety Report 9459113 (Version 2)
Quarter: 2013Q3

REPORT INFORMATION
  Report Type: Spontaneous
  Country: US (occurrence: US)
  Receive Date: 20130814
  Receipt Date: 20130829
  Transmission Date: 20140515
  Serious: Yes (Hospitalization, Other)
  Sender: FDA-Public Use
  Company Number: US-BAXTER-2013BAX031718

PATIENT
  Age: 64 Year
  Sex: Male

DRUGS (1)
  1. DIANEAL LOW CALCIUM (ULTRABAG) [Suspect]
     Indication: PERITONEAL DIALYSIS
     Route: 033
     Dates: end: 20130816

REACTIONS (15)
  - Dizziness [Recovering/Resolving]
  - Muscular weakness [Recovering/Resolving]
  - Deafness [Recovering/Resolving]
  - Vision blurred [Recovering/Resolving]
  - Pulmonary oedema [Recovered/Resolved]
  - Cardiac failure [Unknown]
  - General symptom [Unknown]
  - Balance disorder [Recovering/Resolving]
  - Bloody peritoneal effluent [Unknown]
  - Vein disorder [Unknown]
  - Fluid overload [Unknown]
  - Peritonitis [Recovered/Resolved]
  - Peritoneal dialysis complication [Unknown]
  - Walking aid user [Unknown]
  - Ultrafiltration failure [Unknown]
